FAERS Safety Report 6165725-9 (Version None)
Quarter: 2009Q2

REPORT INFORMATION
  Report Type: 
  Country: None (occurrence: None)
  Receive Date: 20090422
  Receipt Date: 20090409
  Transmission Date: 20091009
  Serious: No
  Sender: FDA-Public Use
  Company Number: 2009-194804-NL

PATIENT
  Age: 39 Year
  Sex: Female

DRUGS (1)
  1. ETONOGESTREL [Suspect]
     Dosage: DF
     Dates: start: 20070126

REACTIONS (3)
  - DEEP VEIN THROMBOSIS [None]
  - FALL [None]
  - LOWER LIMB FRACTURE [None]
